FAERS Safety Report 10037738 (Version 1)
Quarter: 2014Q1

REPORT INFORMATION
  Report Type: Spontaneous
  Country: US (occurrence: US)
  Receive Date: 20140326
  Receipt Date: 20140326
  Transmission Date: 20141002
  Serious: No
  Sender: FDA-Public Use
  Company Number: US-PFIZER INC-2014081953

PATIENT
  Sex: Female

DRUGS (3)
  1. AMLODIPINE BESILATE [Suspect]
     Dosage: UNK
  2. VITAMIN B12 [Interacting]
     Dosage: UNK
  3. VITAMIN D3 [Interacting]
     Dosage: UNK

REACTIONS (3)
  - Hypertension [Recovered/Resolved]
  - Heart rate increased [Unknown]
  - Drug interaction [Unknown]
